FAERS Safety Report 6957614-4 (Version None)
Quarter: 2010Q3

REPORT INFORMATION
  Report Type: 
  Country: None (occurrence: None)
  Receive Date: 20100831
  Receipt Date: 20100826
  Transmission Date: 20110219
  Serious: Yes (Congenital Anomaly)
  Sender: FDA-Public Use
  Company Number: DE-SANOFI-AVENTIS-2010SA051075

PATIENT
  Sex: Female

DRUGS (2)
  1. RHINISAN [Suspect]
     Indication: CHRONIC SINUSITIS
     Route: 064
  2. RHINISAN [Suspect]
     Route: 064

REACTIONS (2)
  - CEREBRAL VENTRICLE DILATATION [None]
  - DRUG EXPOSURE DURING PREGNANCY [None]
